FAERS Safety Report 25172120 (Version 1)
Quarter: 2025Q2

REPORT INFORMATION
  Report Type: Spontaneous
  Country: US (occurrence: US)
  Receive Date: 20250408
  Receipt Date: 20250408
  Transmission Date: 20250717
  Serious: No
  Sender: TRIS PHARM
  Company Number: US-TRIS PHARMA, INC.-25US011912

PATIENT

DRUGS (4)
  1. DEXTROMETHORPHAN HYDROBROMIDE [Suspect]
     Active Substance: DEXTROMETHORPHAN HYDROBROMIDE
     Indication: Cough
     Dosage: 10 MILLILITRE (60 MG), BEDTIME (QHS; ONCE NIGHTLY)
     Route: 048
     Dates: start: 202503, end: 202503
  2. ALLERGY [CHLORPHENAMINE MALEATE] [Concomitant]
     Indication: Product used for unknown indication
  3. TUSSIN DM [Concomitant]
     Active Substance: DEXTROMETHORPHAN HYDROBROMIDE\GUAIFENESIN
     Indication: Cough
     Dates: start: 202503, end: 202503
  4. TUSSIN DM [Concomitant]
     Active Substance: DEXTROMETHORPHAN HYDROBROMIDE\GUAIFENESIN
     Dates: start: 202503, end: 202503

REACTIONS (2)
  - Inappropriate schedule of product administration [Unknown]
  - Drug ineffective [Unknown]

NARRATIVE: CASE EVENT DATE: 20250301
